FAERS Safety Report 20664797 (Version 3)
Quarter: 2022Q2

REPORT INFORMATION
  Report Type: Report from Study
  Country: SG (occurrence: SG)
  Receive Date: 20220401
  Receipt Date: 20220628
  Transmission Date: 20220721
  Serious: Yes (Hospitalization)
  Sender: FDA-Public Use
  Company Number: SG-009507513-2203SGP008801

PATIENT
  Age: 57 Year
  Sex: Female
  Weight: 52.4 kg

DRUGS (6)
  1. KEYTRUDA [Suspect]
     Active Substance: PEMBROLIZUMAB
     Indication: Neoplasm malignant
     Dosage: 200 MG,DAY 1 AND EVERY 21 DAYS
     Route: 042
     Dates: start: 20220309, end: 20220309
  2. TEARS NATURALE FREE [DEXTRAN] [Concomitant]
     Indication: Dry eye
     Dosage: 1 DROP (3 IN 1 D)
     Route: 047
     Dates: start: 20220209
  3. NEUROFORTE-R [Concomitant]
     Indication: Nervous system disorder
     Dosage: 1 DOSAGE FORMS (1 DOSAGE FORM, 1 IN 1 D)
     Route: 048
     Dates: start: 20220209
  4. LACTOBACILLUS ACIDOPHILUS [Concomitant]
     Active Substance: LACTOBACILLUS ACIDOPHILUS
     Indication: Gastrointestinal disorder prophylaxis
     Dosage: 1 DOSAGE FORMS (1 DOSAGE FORMS, 1 IN 1 D)
     Route: 048
     Dates: start: 20220209
  5. CHOLECALCIFEROL [Concomitant]
     Active Substance: CHOLECALCIFEROL
     Indication: Hypocalcaemia
     Dosage: 1000 IU (1000 IU,1 IN 1 D)
     Route: 048
     Dates: start: 20220118
  6. CALCIUM CARBONATE\VITAMIN D [Concomitant]
     Active Substance: CALCIUM CARBONATE\VITAMIN D
     Indication: Hypocalcaemia
     Dosage: 1 TABLET (1 IN 1 D)
     Route: 048
     Dates: start: 20220118

REACTIONS (2)
  - Pyrexia [Recovered/Resolved]
  - Erythema [Recovered/Resolved]

NARRATIVE: CASE EVENT DATE: 20220310
